FAERS Safety Report 8328414-8 (Version None)
Quarter: 2012Q2

REPORT INFORMATION
  Report Type: 
  Country: None (occurrence: None)
  Receive Date: 20120502
  Receipt Date: 20120423
  Transmission Date: 20120825
  Serious: Yes (Hospitalization, Other)
  Sender: FDA-Public Use
  Company Number: PHHY2011BR72562

PATIENT
  Sex: Female

DRUGS (6)
  1. LYRICA [Concomitant]
     Indication: MUSCULOSKELETAL PAIN
     Dosage: UNK UKN, UNK
  2. CYMBALTA [Concomitant]
     Indication: MUSCULOSKELETAL PAIN
     Dosage: UNK UKN, UNK
  3. DIOVAN [Suspect]
     Indication: HYPERTENSION
     Dosage: 80 MG, DAILY
  4. LASIX [Suspect]
     Indication: DIURETIC THERAPY
     Dosage: 40 MG, DAILY
  5. LASIX [Suspect]
     Indication: HYPERTENSION
  6. OSCAL 500-D [Concomitant]
     Dosage: 500 MG, BID

REACTIONS (9)
  - BLOOD PRESSURE INADEQUATELY CONTROLLED [None]
  - JOINT INJURY [None]
  - WOUND HAEMATOMA [None]
  - RETCHING [None]
  - DIZZINESS [None]
  - VOMITING [None]
  - FALL [None]
  - ERYSIPELAS [None]
  - JOINT SWELLING [None]
